FAERS Safety Report 18537732 (Version 2)
Quarter: 2020Q4

REPORT INFORMATION
  Report Type: Other
  Country: CN (occurrence: CN)
  Receive Date: 20201124
  Receipt Date: 20201201
  Transmission Date: 20210114
  Serious: Yes (Other)
  Sender: FDA-Public Use
  Company Number: CN-ROCHE-2718154

PATIENT

DRUGS (3)
  1. ASPIRIN [ACETYLSALICYLIC ACID] [Concomitant]
     Active Substance: ASPIRIN
     Indication: ANTIPLATELET THERAPY
     Route: 048
  2. ALTEPLASE. [Suspect]
     Active Substance: ALTEPLASE
     Dosage: REMAINING DOSE WAS MIXED WITH 100 ML OF 0.9%SODIUM CHLORIDE INJECTION VIA INTRAVENOUS DRIP FOR 1 HOU
     Route: 042
  3. ALTEPLASE. [Suspect]
     Active Substance: ALTEPLASE
     Indication: CEREBRAL INFARCTION
     Dosage: DOSE: 0.6MG/KG?FIRSTLY, 10% OF THE TOTAL DOSE WAS INJECTED INTRAVENOUSLY WITHIN 1 MIN. FREQUENCY: 1,
     Route: 042

REACTIONS (2)
  - Drug ineffective [Unknown]
  - No adverse event [Unknown]
